FAERS Safety Report 8562158-2 (Version None)
Quarter: 2012Q3

REPORT INFORMATION
  Report Type: 
  Country: None (occurrence: None)
  Receive Date: 20120802
  Receipt Date: 20120710
  Transmission Date: 20120928
  Serious: No
  Sender: FDA-Public Use
  Company Number: US-009507513-1206USA03369

PATIENT

DRUGS (5)
  1. JANUVIA [Suspect]
     Indication: DIABETES MELLITUS
     Dosage: UNK UNK, QD
     Route: 048
     Dates: start: 20120502, end: 20120530
  2. METOPROLOL TARTRATE [Concomitant]
  3. METFORMIN HYDROCHLORIDE [Concomitant]
  4. GLYBURIDE [Concomitant]
  5. LOSARTAN POTASSIUM [Concomitant]
     Route: 048

REACTIONS (7)
  - BACK PAIN [None]
  - HEADACHE [None]
  - MUSCULOSKELETAL PAIN [None]
  - NECK PAIN [None]
  - OROPHARYNGEAL PAIN [None]
  - ABDOMINAL PAIN UPPER [None]
  - NAUSEA [None]
